FAERS Safety Report 11937145 (Version 4)
Quarter: 2016Q4

REPORT INFORMATION
  Report Type: Report from Study
  Country: US (occurrence: US)
  Receive Date: 20160121
  Receipt Date: 20161123
  Transmission Date: 20170206
  Serious: No
  Sender: FDA-Public Use
  Company Number: PHEH2016US001640

PATIENT
  Sex: Female
  Weight: 79.37 kg

DRUGS (1)
  1. GILENYA [Suspect]
     Active Substance: FINGOLIMOD HYDROCHLORIDE
     Indication: MULTIPLE SCLEROSIS
     Dosage: 0.5 MG, QD
     Route: 048
     Dates: start: 20110329

REACTIONS (14)
  - Stress [Unknown]
  - Dyslexia [Unknown]
  - Abnormal behaviour [Unknown]
  - Increased appetite [Unknown]
  - Visual acuity reduced [Not Recovered/Not Resolved]
  - Disorientation [Unknown]
  - Confusional state [Unknown]
  - Memory impairment [Unknown]
  - Feeling drunk [Unknown]
  - Visual impairment [Unknown]
  - Frustration tolerance decreased [Unknown]
  - Malaise [Unknown]
  - Weight increased [Unknown]
  - Coordination abnormal [Unknown]
